FAERS Safety Report 25807061 (Version 1)
Quarter: 2025Q3

REPORT INFORMATION
  Report Type: Spontaneous
  Country: US (occurrence: None)
  Receive Date: 20250915
  Receipt Date: 20250915
  Transmission Date: 20251020
  Serious: Yes (Death, Life-Threatening, Hospitalization, Disabling, Other)
  Sender: FDA-CTU
  Company Number: None

PATIENT
  Age: 63 Year
  Sex: Female
  Weight: 102.06 kg

DRUGS (4)
  1. ABILIFY [Suspect]
     Active Substance: ARIPIPRAZOLE
     Indication: Bipolar disorder
     Dosage: FREQUENCY : DAILY;?
     Route: 048
     Dates: end: 202508
  2. LOSARTAN [Concomitant]
     Active Substance: LOSARTAN
  3. Sleep Pills [Concomitant]
  4. METFORMIN [Concomitant]
     Active Substance: METFORMIN HYDROCHLORIDE

REACTIONS (12)
  - Skin wrinkling [None]
  - Mental disorder [None]
  - Tremor [None]
  - Gambling disorder [None]
  - Hypophagia [None]
  - Presyncope [None]
  - Dyspnoea [None]
  - Urinary tract disorder [None]
  - Pneumonia [None]
  - Hallucinations, mixed [None]
  - Suicidal ideation [None]
  - Blood glucose increased [None]

NARRATIVE: CASE EVENT DATE: 20050101
